FAERS Safety Report 23085546 (Version 1)
Quarter: 2023Q4

REPORT INFORMATION
  Report Type: Report from Study
  Country: US (occurrence: US)
  Receive Date: 20231019
  Receipt Date: 20231019
  Transmission Date: 20240109
  Serious: Yes (Other)
  Sender: FDA-Public Use
  Company Number: US-JAZZ PHARMACEUTICALS-2023-US-014906

PATIENT
  Age: 46 Year
  Sex: Female

DRUGS (9)
  1. XYREM [Suspect]
     Active Substance: SODIUM OXYBATE
     Indication: Narcolepsy
     Dosage: UNK
  2. XYREM [Suspect]
     Active Substance: SODIUM OXYBATE
     Indication: Cataplexy
  3. XYREM [Suspect]
     Active Substance: SODIUM OXYBATE
     Indication: Somnolence
  4. WARFARIN SODIUM [Concomitant]
     Active Substance: WARFARIN SODIUM
     Dosage: 0000
     Dates: start: 19971007
  5. ZYRTEC [Concomitant]
     Active Substance: CETIRIZINE HYDROCHLORIDE
     Dosage: 0010 FREQUENCY: OTH
     Dates: start: 20010101
  6. VITAMINS [Concomitant]
     Active Substance: VITAMINS
     Dosage: 0010
     Dates: start: 20010101
  7. FOLIC ACID [Concomitant]
     Active Substance: FOLIC ACID
     Dosage: 0010
     Dates: start: 20010101
  8. NADOLOL [Concomitant]
     Active Substance: NADOLOL
     Dosage: 0000
     Dates: start: 20150923
  9. TYLENOL [Concomitant]
     Active Substance: ACETAMINOPHEN
     Dosage: 0000
     Dates: start: 20160217

REACTIONS (2)
  - Weight decreased [Unknown]
  - Migraine [Unknown]

NARRATIVE: CASE EVENT DATE: 20160201
